FAERS Safety Report 23752895 (Version 1)
Quarter: 2024Q2

REPORT INFORMATION
  Report Type: Report from Study
  Country: US (occurrence: US)
  Receive Date: 20240417
  Receipt Date: 20240417
  Transmission Date: 20240716
  Serious: No
  Sender: FDA-Public Use
  Company Number: US-E2BLSMVVAL-CLI/USA/24/0005436

PATIENT
  Age: 2 Year
  Sex: Female
  Weight: 15.51 kg

DRUGS (1)
  1. SAPROPTERIN DIHYDROCHLORIDE [Suspect]
     Active Substance: SAPROPTERIN DIHYDROCHLORIDE
     Indication: Phenylketonuria
     Dosage: DISSOLVE 100 MG POWDER PACKET IN 4-8 OUNCE OF WATER OR APPLE JUICE.
     Route: 048

REACTIONS (1)
  - Hyperphagia [Unknown]
